FAERS Safety Report 14760041 (Version 8)
Quarter: 2019Q1

REPORT INFORMATION
  Report Type: Spontaneous
  Country: US (occurrence: US)
  Receive Date: 20180413
  Receipt Date: 20190304
  Transmission Date: 20190417
  Serious: Yes (Hospitalization)
  Sender: FDA-Public Use
  Company Number: US-ACTELION-A-NJ2018-169852

PATIENT
  Sex: Female
  Weight: 62.59 kg

DRUGS (4)
  1. REMODULIN [Concomitant]
     Active Substance: TREPROSTINIL
  2. ELIQUIS [Concomitant]
     Active Substance: APIXABAN
  3. SILDENAFIL CITRATE. [Concomitant]
     Active Substance: SILDENAFIL CITRATE
  4. OPSUMIT [Suspect]
     Active Substance: MACITENTAN
     Indication: PULMONARY HYPERTENSION
     Dosage: 10 MG, QD
     Route: 048

REACTIONS (8)
  - Dyspnoea [Unknown]
  - Upper respiratory tract infection [Unknown]
  - Peripheral swelling [Unknown]
  - Skin ulcer [Unknown]
  - Pulmonary hypertension [Unknown]
  - Pulmonary arterial hypertension [Unknown]
  - Pulmonary arterial pressure increased [Unknown]
  - Scleroderma [Unknown]
